FAERS Safety Report 10083207 (Version 3)
Quarter: 2014Q2

REPORT INFORMATION
  Report Type: Report from Study
  Country: DE (occurrence: DE)
  Receive Date: 20140417
  Receipt Date: 20140508
  Transmission Date: 20141212
  Serious: Yes (Death, Hospitalization)
  Sender: FDA-Public Use
  Company Number: DE-ROCHE-1235376

PATIENT
  Age: 75 Year
  Sex: Female
  Weight: 68 kg

DRUGS (9)
  1. TRASTUZUMAB [Suspect]
     Indication: BREAST CANCER
     Dosage: LOADING DOSE
     Route: 042
     Dates: start: 20130318
  2. TRASTUZUMAB [Suspect]
     Dosage: MAINTENANCE DOSE?DATE OF LAST DOSE PRIOR TO ONSET OF SAE: 29/APR/2013.
     Route: 042
     Dates: start: 20130408, end: 20130610
  3. PERTUZUMAB [Suspect]
     Indication: BREAST CANCER
     Dosage: LOADING DOSE
     Route: 042
     Dates: start: 20130318
  4. PERTUZUMAB [Suspect]
     Dosage: MAINTENANCE DOSE?DATE OF LAST DOSE PRIOR TO SAE: 29/APR/2013.
     Route: 042
     Dates: start: 20130408, end: 20130610
  5. PACLITAXEL [Suspect]
     Indication: BREAST CANCER
     Dosage: DATE OF LAST DOSE PRIOR TO ONSET OF SAE: 03/JUN/2013.
     Route: 042
     Dates: start: 20130318, end: 20130610
  6. LOSARTAN [Concomitant]
     Route: 065
  7. REGAINE [Concomitant]
     Route: 065
  8. NEBIVOLOL [Concomitant]
     Route: 065
  9. METROCREAM [Concomitant]
     Route: 065

REACTIONS (2)
  - General physical health deterioration [Fatal]
  - Cardiac failure congestive [Fatal]
